FAERS Safety Report 24723972 (Version 1)
Quarter: 2024Q4

REPORT INFORMATION
  Report Type: Spontaneous
  Country: US (occurrence: US)
  Receive Date: 20241211
  Receipt Date: 20241211
  Transmission Date: 20250115
  Serious: Yes (Other)
  Sender: AMGEN
  Company Number: US-AMGEN-USASP2024241318

PATIENT
  Age: 70 Year
  Sex: Female

DRUGS (2)
  1. TAVNEOS [Suspect]
     Active Substance: AVACOPAN
     Indication: Product used for unknown indication
     Dosage: 3 DOSAGE FORM, BID (THREE CAPSULES BY MOUTH TWICE DAILY WITH FOOD.)
     Route: 048
     Dates: start: 2024
  2. ELIQUIS [Concomitant]
     Active Substance: APIXABAN
     Dosage: UNK (POTENTIALLY REDUCE THE DOSE)
     Route: 065

REACTIONS (2)
  - Ocular hyperaemia [Not Recovered/Not Resolved]
  - Lacrimation increased [Not Recovered/Not Resolved]

NARRATIVE: CASE EVENT DATE: 20240101
